FAERS Safety Report 14212803 (Version 2)
Quarter: 2017Q4

REPORT INFORMATION
  Report Type: Report from Study
  Country: US (occurrence: BR)
  Receive Date: 20171122
  Receipt Date: 20171208
  Transmission Date: 20180321
  Serious: Yes (Death, Hospitalization, Other)
  Sender: FDA-Public Use
  Company Number: US-SUNOVION-2017SUN005056

PATIENT
  Age: 68 Year
  Sex: Male
  Weight: 40 kg

DRUGS (1)
  1. INDACATEROL AND GLYCOPYRROLATE [Suspect]
     Active Substance: GLYCOPYRROLATE\INDACATEROL MALEATE
     Indication: PRODUCT USED FOR UNKNOWN INDICATION
     Dosage: 1 DF, BID; 110+50 UG; REGIMEN #1
     Route: 065

REACTIONS (3)
  - Weight decreased [Unknown]
  - Pulmonary oedema [Fatal]
  - Inappropriate schedule of drug administration [Unknown]
